FAERS Safety Report 8258486-0 (Version None)
Quarter: 2012Q2

REPORT INFORMATION
  Report Type: 
  Country: None (occurrence: None)
  Receive Date: 20120403
  Receipt Date: 20120403
  Transmission Date: 20120825
  Serious: Yes (Other)
  Sender: FDA-Public Use
  Company Number: None

PATIENT
  Sex: Male

DRUGS (2)
  1. ENBREL [Suspect]
     Indication: PSORIASIS
     Dosage: 25MG TWICE A WEEK SQ
     Route: 058
     Dates: start: 19990101, end: 20111101
  2. ENBREL [Suspect]
     Indication: PSORIATIC ARTHROPATHY
     Dosage: 25MG TWICE A WEEK SQ
     Route: 058
     Dates: start: 19990101, end: 20111101

REACTIONS (1)
  - PANCREATIC CARCINOMA [None]
